FAERS Safety Report 18594283 (Version 7)
Quarter: 2023Q1

REPORT INFORMATION
  Report Type: Report from Study
  Country: DE (occurrence: DE)
  Receive Date: 20201209
  Receipt Date: 20230208
  Transmission Date: 20230418
  Serious: Yes (Hospitalization, Other)
  Sender: FDA-Public Use
  Company Number: NVSC2020DE325670

PATIENT
  Age: 4 Year
  Sex: Female
  Weight: 20.8 kg

DRUGS (10)
  1. ILARIS [Suspect]
     Active Substance: CANAKINUMAB
     Indication: Cryopyrin associated periodic syndrome
     Dosage: 36 MG, QMO
     Route: 058
     Dates: start: 20200121
  2. ILARIS [Suspect]
     Active Substance: CANAKINUMAB
     Dosage: 90 MG
     Route: 058
     Dates: end: 20220905
  3. ILARIS [Suspect]
     Active Substance: CANAKINUMAB
     Dosage: 90 MG
     Route: 058
     Dates: end: 20220521
  4. ILARIS [Suspect]
     Active Substance: CANAKINUMAB
     Dosage: 90 MG
     Route: 058
     Dates: start: 20221003
  5. COLCHICINE [Suspect]
     Active Substance: COLCHICINE
     Indication: Familial cold autoinflammatory syndrome
     Dosage: 1 MG, QD
     Route: 048
     Dates: start: 20180412
  6. COLCHICINE [Suspect]
     Active Substance: COLCHICINE
     Indication: Cryopyrin associated periodic syndrome
     Dosage: 0.5 MG, BID (COLCHICINE 2 X DAILY 0.5 MG)
     Route: 048
  7. COLCHICINE [Suspect]
     Active Substance: COLCHICINE
     Dosage: 1.5 MG, QD
     Route: 065
  8. COLCHICINE [Suspect]
     Active Substance: COLCHICINE
     Dosage: 0.75 MG, BID
     Route: 048
     Dates: start: 20220715
  9. COLCHICINE [Suspect]
     Active Substance: COLCHICINE
     Dosage: 750 MG, BID
     Route: 048
  10. COLCHICINE [Suspect]
     Active Substance: COLCHICINE
     Dosage: 0.75 MG, BID
     Route: 048

REACTIONS (8)
  - Dehydration [Recovered/Resolved]
  - Gastroenteritis [Recovered/Resolved]
  - Cryopyrin associated periodic syndrome [Recovered/Resolved]
  - Condition aggravated [Recovered/Resolved]
  - Coronavirus infection [Recovered/Resolved]
  - Asymptomatic COVID-19 [Recovered/Resolved]
  - Otitis media [Recovered/Resolved]
  - Otitis media [Recovered/Resolved]

NARRATIVE: CASE EVENT DATE: 20201117
